FAERS Safety Report 6487213-2 (Version None)
Quarter: 2009Q4

REPORT INFORMATION
  Report Type: 
  Country: None (occurrence: None)
  Receive Date: 20091210
  Receipt Date: 20091130
  Transmission Date: 20100525
  Serious: Yes (Death, Life-Threatening)
  Sender: FDA-Public Use
  Company Number: AU-JNJFOC-20090907869

PATIENT
  Sex: Female
  Weight: 45 kg

DRUGS (4)
  1. REMICADE [Suspect]
     Indication: RHEUMATOID ARTHRITIS
     Dosage: 3 MG/KG--ASSUMED WEIGHT OF 45 KG
     Route: 042
  2. MABTHERA [Suspect]
     Indication: RHEUMATOID ARTHRITIS
  3. FUROSEMIDE [Concomitant]
  4. SOTALOL HCL [Concomitant]

REACTIONS (3)
  - CARDIAC FAILURE CONGESTIVE [None]
  - PULMONARY ARTERIAL HYPERTENSION [None]
  - PULMONARY FIBROSIS [None]
